FAERS Safety Report 25450890 (Version 1)
Quarter: 2025Q2

REPORT INFORMATION
  Report Type: Spontaneous
  Country: JP (occurrence: JP)
  Receive Date: 20250618
  Receipt Date: 20250618
  Transmission Date: 20250716
  Serious: Yes (Death)
  Sender: DAIICHI
  Company Number: JP-DSJP-DS-2025-147794-JPAA

PATIENT
  Age: 8 Decade
  Sex: Male

DRUGS (1)
  1. EDOXABAN TOSYLATE [Suspect]
     Active Substance: EDOXABAN TOSYLATE
     Indication: Product dispensing error
     Dosage: 30 MG, QD
     Route: 048
     Dates: start: 20170428, end: 20170430

REACTIONS (2)
  - Gastrointestinal haemorrhage [Fatal]
  - Product dispensing error [Fatal]

NARRATIVE: CASE EVENT DATE: 20170427
